FAERS Safety Report 5689376-5 (Version None)
Quarter: 2008Q1

REPORT INFORMATION
  Report Type: 
  Country: None (occurrence: None)
  Receive Date: 20080328
  Receipt Date: 20080312
  Transmission Date: 20080703
  Serious: Yes (Other)
  Sender: FDA-Public Use
  Company Number: 2008S1004315

PATIENT
  Age: 20 Year
  Sex: Female
  Weight: 72.6209 kg

DRUGS (2)
  1. AMNESTEEM [Suspect]
     Dosage: 40 MG;TWICE A DAY;ORAL
     Route: 048
     Dates: start: 20070830, end: 20070929
  2. AMNESTEEM [Suspect]
     Dosage: 40 MG;TWICE A DAY;ORAL
     Route: 048
     Dates: start: 20071101, end: 20071220

REACTIONS (2)
  - DRUG EXPOSURE BEFORE PREGNANCY [None]
  - PREGNANCY [None]
